FAERS Safety Report 7820903-5 (Version None)
Quarter: 2011Q4

REPORT INFORMATION
  Report Type: 
  Country: None (occurrence: None)
  Receive Date: 20111018
  Receipt Date: 20110913
  Transmission Date: 20120403
  Serious: Yes (Other)
  Sender: FDA-Public Use
  Company Number: US-GLAXOSMITHKLINE-A0946044A

PATIENT
  Age: 26 Year
  Sex: Female

DRUGS (1)
  1. LAMICTAL [Suspect]
     Indication: EPILEPSY
     Dosage: 25MG UNKNOWN
     Route: 048
     Dates: start: 20110728, end: 20110811

REACTIONS (4)
  - OROPHARYNGEAL PAIN [None]
  - RASH [None]
  - LYMPHADENOPATHY [None]
  - HEADACHE [None]
